FAERS Safety Report 7338973-X (Version None)
Quarter: 2011Q1

REPORT INFORMATION
  Report Type: 
  Country: None (occurrence: None)
  Receive Date: 20110308
  Receipt Date: 20110223
  Transmission Date: 20110831
  Serious: Yes (Death)
  Sender: FDA-Public Use
  Company Number: FR-ELI_LILLY_AND_COMPANY-FR201102006273

PATIENT
  Age: 80 Year
  Sex: Male

DRUGS (12)
  1. ZYLORIC [Concomitant]
  2. SERESTA [Concomitant]
  3. LYRICA [Concomitant]
     Indication: ANXIETY
     Dosage: 25 MG, 2/D
     Route: 048
     Dates: start: 20090626, end: 20090626
  4. METFORMINE [Concomitant]
  5. BISOPROLOL FUMARATE [Concomitant]
  6. JANUVIA [Concomitant]
  7. ATACAND [Concomitant]
  8. SERMION [Concomitant]
  9. TAHOR [Concomitant]
  10. LASIX [Concomitant]
  11. CYMBALTA [Suspect]
     Indication: DEPRESSION
     Dosage: 30 MG, DAILY (1/D)
     Route: 048
     Dates: start: 20090626, end: 20090626
  12. VERATRAN [Concomitant]

REACTIONS (3)
  - CYTOLYTIC HEPATITIS [None]
  - CEREBRAL HAEMORRHAGE [None]
  - HEPATOCELLULAR INJURY [None]
